FAERS Safety Report 8341338-5 (Version None)
Quarter: 2012Q2

REPORT INFORMATION
  Report Type: 
  Country: None (occurrence: None)
  Receive Date: 20120507
  Receipt Date: 20120430
  Transmission Date: 20120825
  Serious: Yes (Other)
  Sender: FDA-Public Use
  Company Number: US-INCYTE CORPORATION-2012IN000288

PATIENT
  Sex: Male
  Weight: 89.796 kg

DRUGS (6)
  1. PROTONIX [Concomitant]
     Dosage: 40 MG, QD
     Route: 048
  2. LYRICA [Concomitant]
     Dosage: 75 MG, TID
     Route: 048
  3. ALLOPURINOL [Concomitant]
     Dosage: 50 MG, QD (EVERY EVENING)
     Route: 048
  4. ASPIRIN [Concomitant]
     Dosage: 325 MG, QD
     Route: 048
  5. AMITRIPTYLINE HCL [Concomitant]
     Dosage: 50 MG, QD (AT BEDTIME)
     Route: 048
  6. JAKAFI [Suspect]
     Indication: MYELOFIBROSIS
     Dosage: 20 MG, BID
     Route: 048
     Dates: start: 20120213, end: 20120227

REACTIONS (6)
  - HEADACHE [None]
  - NAUSEA [None]
  - ANAEMIA [None]
  - DIZZINESS [None]
  - GENERAL PHYSICAL CONDITION ABNORMAL [None]
  - THROMBOCYTOPENIA [None]
